FAERS Safety Report 22012624 (Version 2)
Quarter: 2023Q1

REPORT INFORMATION
  Report Type: Report from Study
  Country: CN (occurrence: CN)
  Receive Date: 20230220
  Receipt Date: 20230306
  Transmission Date: 20230418
  Serious: Yes (Hospitalization)
  Sender: FDA-Public Use
  Company Number: CN-BAYER-2023A018130

PATIENT
  Age: 69 Year
  Sex: Male
  Weight: 53 kg

DRUGS (15)
  1. REGORAFENIB [Suspect]
     Active Substance: REGORAFENIB
     Indication: Colorectal cancer
     Dosage: 80 MG, QD
     Route: 048
     Dates: start: 20221011, end: 20221225
  2. REGORAFENIB [Suspect]
     Active Substance: REGORAFENIB
     Indication: Colorectal cancer
     Dosage: 160 MG, QD
     Route: 048
     Dates: start: 20221226, end: 20221226
  3. REGORAFENIB [Suspect]
     Active Substance: REGORAFENIB
     Indication: Colorectal cancer
     Dosage: UNK
     Route: 048
     Dates: start: 20221227, end: 20230106
  4. TAMSULOSIN HYDROCHLORIDE [Concomitant]
     Active Substance: TAMSULOSIN HYDROCHLORIDE
     Dosage: 0.2 MG
     Dates: start: 20220817
  5. FINASTERIDE [Concomitant]
     Active Substance: FINASTERIDE
     Dosage: 5 MG
     Dates: start: 20220817
  6. ILAPRAZOLE [Concomitant]
     Active Substance: ILAPRAZOLE
     Indication: Abdominal infection
     Route: 042
  7. LIDOCAINE HYDROCHLORIDE [Concomitant]
     Active Substance: LIDOCAINE HYDROCHLORIDE
     Indication: Local anaesthesia
  8. GLYCERIN\LECITHIN\MEDIUM-CHAIN TRIGLYCERIDES\SOYBEAN OIL [Concomitant]
     Active Substance: GLYCERIN\LECITHIN\MEDIUM-CHAIN TRIGLYCERIDES\SOYBEAN OIL
  9. AMINO ACIDS [AMINO ACIDS NOS] [Concomitant]
     Indication: Malnutrition
  10. AMINO ACIDS [AMINO ACIDS NOS] [Concomitant]
     Indication: Metabolic disorder
  11. DEXTROSE [Concomitant]
     Active Substance: DEXTROSE
     Indication: Malnutrition
  12. DEXTROSE [Concomitant]
     Active Substance: DEXTROSE
     Indication: Metabolic disorder
  13. HEPARIN SODIUM [Concomitant]
     Active Substance: HEPARIN SODIUM
     Indication: Surgery
  14. ALBUMIN HUMAN [Concomitant]
     Active Substance: ALBUMIN HUMAN
     Indication: Hypoproteinaemia
  15. URSODIOL [Concomitant]
     Active Substance: URSODIOL
     Indication: Blood bilirubin increased

REACTIONS (1)
  - Abdominal distension [Not Recovered/Not Resolved]

NARRATIVE: CASE EVENT DATE: 20221227
